FAERS Safety Report 23258049 (Version 2)
Quarter: 2023Q4

REPORT INFORMATION
  Report Type: Spontaneous
  Country: FR (occurrence: None)
  Receive Date: 20231204
  Receipt Date: 20231227
  Transmission Date: 20240110
  Serious: Yes (Other)
  Sender: FDA-Public Use
  Company Number: 2023A273572

PATIENT
  Age: 7 Month
  Sex: Male
  Weight: 7.8 kg

DRUGS (1)
  1. BEYFORTUS [Suspect]
     Active Substance: NIRSEVIMAB-ALIP
     Indication: Immunisation
     Dosage: 100 MG
     Dates: start: 20231013, end: 20231013

REACTIONS (1)
  - Respiratory syncytial virus bronchiolitis [Recovered/Resolved]

NARRATIVE: CASE EVENT DATE: 20231116
